FAERS Safety Report 15576151 (Version 1)
Quarter: 2018Q4

REPORT INFORMATION
  Report Type: Spontaneous
  Country: US (occurrence: US)
  Receive Date: 20181101
  Receipt Date: 20181101
  Transmission Date: 20190205
  Serious: Yes (Other)
  Sender: FDA-Public Use
  Company Number: US-AMGEN-USASP2018152404

PATIENT
  Age: 60 Year
  Sex: Female

DRUGS (4)
  1. ENBREL [Suspect]
     Active Substance: ETANERCEPT
     Indication: RHEUMATOID ARTHRITIS
     Dosage: 50 MG, EVERY 5 DAYS
     Route: 065
  2. GLUTEN [Concomitant]
     Active Substance: WHEAT GLUTEN
     Dosage: UNK
  3. ARAVA [Suspect]
     Active Substance: LEFLUNOMIDE
     Indication: PRODUCT USED FOR UNKNOWN INDICATION
     Dosage: UNK
     Route: 065
  4. ENBREL [Suspect]
     Active Substance: ETANERCEPT
     Dosage: 50 MG, QWK
     Route: 065

REACTIONS (14)
  - Musculoskeletal discomfort [Unknown]
  - Nail disorder [Unknown]
  - Off label use [Unknown]
  - Crying [Recovering/Resolving]
  - Helminthic infection [Recovering/Resolving]
  - Disturbance in attention [Unknown]
  - Injection site pain [Unknown]
  - Alopecia [Unknown]
  - Depression suicidal [Recovering/Resolving]
  - Extra dose administered [Unknown]
  - Diarrhoea [Recovering/Resolving]
  - Protein total decreased [Recovering/Resolving]
  - Product storage error [Unknown]
  - Blood iron decreased [Recovering/Resolving]

NARRATIVE: CASE EVENT DATE: 20181026
